FAERS Safety Report 18778865 (Version 4)
Quarter: 2021Q4

REPORT INFORMATION
  Report Type: Report from Study
  Country: US (occurrence: US)
  Receive Date: 20210124
  Receipt Date: 20211124
  Transmission Date: 20220304
  Serious: Yes (Other)
  Sender: FDA-Public Use
  Company Number: US-BEH-2020126787

PATIENT
  Age: 15 Year
  Sex: Female
  Weight: 77.11 kg

DRUGS (4)
  1. HAEGARDA [Suspect]
     Active Substance: HUMAN C1-ESTERASE INHIBITOR
     Indication: Hereditary angioedema
     Dosage: 3250 INTERNATIONAL UNIT, TWICE WEEKLY
     Route: 058
     Dates: start: 202012, end: 202012
  2. HAEGARDA [Suspect]
     Active Substance: HUMAN C1-ESTERASE INHIBITOR
     Dosage: 4000 IU
     Route: 058
     Dates: start: 20201101
  3. HAEGARDA [Suspect]
     Active Substance: HUMAN C1-ESTERASE INHIBITOR
     Dosage: 1.0 IU/KG
     Route: 058
     Dates: start: 20211108
  4. HAEGARDA [Suspect]
     Active Substance: HUMAN C1-ESTERASE INHIBITOR
     Dosage: 1000IU/KG
     Route: 058

REACTIONS (13)
  - Headache [Unknown]
  - No adverse event [Unknown]
  - Headache [Unknown]
  - Insurance issue [Unknown]
  - No adverse event [Unknown]
  - Syringe issue [Unknown]
  - Drug level decreased [Unknown]
  - Abdominal discomfort [Unknown]
  - Hereditary angioedema [Unknown]
  - Product supply issue [Unknown]
  - Product dose omission issue [Unknown]
  - Hereditary angioedema [Not Recovered/Not Resolved]
  - Product supply issue [Not Recovered/Not Resolved]

NARRATIVE: CASE EVENT DATE: 20201201
